FAERS Safety Report 6347995-7 (Version None)
Quarter: 2009Q3

REPORT INFORMATION
  Report Type: 
  Country: None (occurrence: None)
  Receive Date: 20090910
  Receipt Date: 20090901
  Transmission Date: 20100115
  Serious: Yes (Death, Hospitalization, Congenital Anomaly, Other)
  Sender: FDA-Public Use
  Company Number: IE-CELGENEUS-TNZIE200800109

PATIENT
  Sex: Male
  Weight: 2.95 kg

DRUGS (9)
  1. INNOHEP [Suspect]
     Route: 064
     Dates: start: 20060820, end: 20070326
  2. INNOHEP [Suspect]
     Route: 064
     Dates: start: 20070330, end: 20070404
  3. ASPIRIN [Concomitant]
     Route: 064
  4. CEPHRADINE [Concomitant]
     Route: 064
     Dates: start: 20061203, end: 20061210
  5. ACETAMINOPHEN [Concomitant]
     Route: 064
     Dates: start: 20061204, end: 20061208
  6. MEPERIDINE HCL [Concomitant]
     Route: 064
     Dates: start: 20061203, end: 20061206
  7. PHENERGAN [Concomitant]
     Route: 064
     Dates: start: 20061203, end: 20061206
  8. VELOSEF [Concomitant]
     Route: 064
     Dates: start: 20061207, end: 20061208
  9. DEXAMETHASONE [Concomitant]
     Route: 064
     Dates: start: 20070331, end: 20070401

REACTIONS (3)
  - DRUG EXPOSURE DURING PREGNANCY [None]
  - MITOCHONDRIAL CYTOPATHY [None]
  - RESPIRATORY DISTRESS [None]
